FAERS Safety Report 4595008-X (Version None)
Quarter: 2005Q1

REPORT INFORMATION
  Report Type: 
  Country: None (occurrence: None)
  Receive Date: 20050224
  Receipt Date: 20030804
  Transmission Date: 20050727
  Serious: Yes (Congenital Anomaly)
  Sender: FDA-Public Use
  Company Number: GXKR2003GB00503

PATIENT
  Sex: Male
  Weight: 3.1 kg

DRUGS (3)
  1. ZOLPIDEM [Suspect]
     Dosage: TRANSPLACENTAL
     Route: 064
  2. PROPRANOLOL [Suspect]
     Indication: HYPERTENSION
     Dosage: TRANSPLACENTAL
     Route: 064
  3. EFFEXOR [Suspect]
     Indication: DEPRESSION
     Dosage: TRANSPLACENTAL
     Route: 064

REACTIONS (4)
  - CONGENITAL ANOMALY [None]
  - DRUG EXPOSURE DURING PREGNANCY [None]
  - HEMIVERTEBRA [None]
  - TALIPES [None]
